FAERS Safety Report 4374139-3 (Version None)
Quarter: 2004Q2

REPORT INFORMATION
  Report Type: 
  Country: None (occurrence: None)
  Receive Date: 20040609
  Receipt Date: 20040520
  Transmission Date: 20050107
  Serious: Yes (Other)
  Sender: FDA-Public Use
  Company Number: 200411793JP

PATIENT
  Age: 67 Year
  Sex: Female
  Weight: 42 kg

DRUGS (9)
  1. KETEK [Suspect]
     Indication: BRONCHITIS ACUTE
     Route: 048
     Dates: start: 20040507, end: 20040511
  2. HOKUNALIN [Concomitant]
     Indication: EMPHYSEMA
     Route: 003
     Dates: start: 20000327
  3. JUVELA NICOTINATE [Concomitant]
     Indication: HYPERTENSION
     Route: 048
     Dates: start: 20020913
  4. CPG [Concomitant]
     Indication: RASH
     Route: 048
     Dates: start: 20020913
  5. NORVASC [Concomitant]
     Indication: HYPERTENSION
     Route: 048
     Dates: start: 20031119
  6. DIPYRIDAMOLE [Concomitant]
     Indication: BRONCHITIS ACUTE
     Route: 048
     Dates: start: 20040507, end: 20040511
  7. BAZAROIN [Concomitant]
     Indication: BRONCHITIS ACUTE
     Dosage: DOSE: 3 TABLET
     Route: 048
     Dates: start: 20040507, end: 20040511
  8. SISAAL [Concomitant]
     Indication: BRONCHITIS ACUTE
     Dosage: DOSE: 2 TABLETS
     Route: 048
     Dates: start: 20040507, end: 20040511
  9. SP TROCHE [Concomitant]
     Indication: PHARYNGOLARYNGEAL PAIN
     Route: 048
     Dates: start: 20040507, end: 20040511

REACTIONS (5)
  - BLOOD LACTATE DEHYDROGENASE INCREASED [None]
  - DRUG ERUPTION [None]
  - FEELING HOT [None]
  - INFLAMMATION [None]
  - RENAL IMPAIRMENT [None]
